FAERS Safety Report 7910617-5 (Version None)
Quarter: 2011Q4

REPORT INFORMATION
  Report Type: 
  Country: None (occurrence: None)
  Receive Date: 20111111
  Receipt Date: 20111104
  Transmission Date: 20120403
  Serious: Yes (Hospitalization, Other)
  Sender: FDA-Public Use
  Company Number: US-US-EMD SERONO, INC.-7093971

PATIENT
  Sex: Female

DRUGS (2)
  1. REBIF [Suspect]
     Indication: PRODUCT USED FOR UNKNOWN INDICATION
     Route: 058
     Dates: start: 20030902
  2. HORMONES [Concomitant]
     Indication: HOT FLUSH

REACTIONS (8)
  - HYPERTENSION [None]
  - MALAISE [None]
  - STAPHYLOCOCCAL INFECTION [None]
  - FUNGAL INFECTION [None]
  - CHRONIC OBSTRUCTIVE PULMONARY DISEASE [None]
  - URINARY TRACT INFECTION [None]
  - PNEUMONIA [None]
  - INJECTION SITE PAIN [None]
